FAERS Safety Report 4537471-6 (Version None)
Quarter: 2004Q4

REPORT INFORMATION
  Report Type: 
  Country: None (occurrence: None)
  Receive Date: 20041216
  Receipt Date: 20040123
  Transmission Date: 20050328
  Serious: Yes (Other)
  Sender: FDA-Public Use
  Company Number: HQWYE576927JAN04

PATIENT
  Age: 47 Year
  Sex: Male
  Weight: 81.72 kg

DRUGS (2)
  1. EFFEXOR XR [Suspect]
     Indication: DEPRESSION
     Dosage: 187.5 MG (FREQUENCY UNSPECIFIED), ORAL
     Route: 048
  2. KLONOPIN [Concomitant]

REACTIONS (1)
  - BLOOD CREATINE PHOSPHOKINASE INCREASED [None]
